FAERS Safety Report 8600658-7 (Version None)
Quarter: 2012Q3

REPORT INFORMATION
  Report Type: 
  Country: None (occurrence: None)
  Receive Date: 20120817
  Receipt Date: 20120807
  Transmission Date: 20120928
  Serious: Yes (Hospitalization)
  Sender: FDA-Public Use
  Company Number: US-BAYER-2012-033388

PATIENT
  Age: 25 Year
  Sex: Female
  Weight: 70.295 kg

DRUGS (11)
  1. YAZ [Suspect]
     Indication: PREMENSTRUAL SYNDROME
  2. KEPPRA [Concomitant]
  3. CARISOPRODOL [Concomitant]
  4. YAZ [Suspect]
     Indication: ACNE
  5. DROSPIRENONE AND ETHINYL ESTRADIOL [Suspect]
     Indication: CONTRACEPTION
     Dosage: UNK
     Dates: start: 20101101, end: 20110801
  6. CYMBALTA [Concomitant]
  7. DROSPIRENONE AND ETHINYL ESTRADIOL [Suspect]
     Indication: ACNE
  8. VISTARIL [Concomitant]
  9. NIMODIPINE [Concomitant]
  10. YAZ [Suspect]
     Indication: CONTRACEPTION
     Dosage: UNK
     Dates: start: 20101101, end: 20110801
  11. DROSPIRENONE AND ETHINYL ESTRADIOL [Suspect]
     Indication: PREMENSTRUAL SYNDROME

REACTIONS (6)
  - INTRACRANIAL VENOUS SINUS THROMBOSIS [None]
  - HEADACHE [None]
  - PAIN [None]
  - INSOMNIA [None]
  - EMOTIONAL DISTRESS [None]
  - INJURY [None]
